FAERS Safety Report 5740058-0 (Version None)
Quarter: 2008Q2

REPORT INFORMATION
  Report Type: 
  Country: None (occurrence: None)
  Receive Date: 20080516
  Receipt Date: 20080507
  Transmission Date: 20081010
  Serious: Yes (Other)
  Sender: FDA-Public Use
  Company Number: PHHY2008AU07374

PATIENT
  Age: 57 Year
  Sex: Male
  Weight: 76 kg

DRUGS (2)
  1. FAMVIR [Suspect]
     Indication: HERPES ZOSTER
     Dosage: 750 MG
     Route: 048
     Dates: start: 19991217, end: 19991219
  2. LOSEC I.V. [Concomitant]

REACTIONS (4)
  - ATAXIA [None]
  - DEPERSONALISATION [None]
  - DYSARTHRIA [None]
  - HALLUCINATION [None]
